FAERS Safety Report 9255882 (Version 5)
Quarter: 2015Q1

REPORT INFORMATION
  Report Type: Spontaneous
  Country: US (occurrence: US)
  Receive Date: 20130425
  Receipt Date: 20150220
  Transmission Date: 20150721
  Serious: No
  Sender: FDA-Public Use
  Company Number: US-009507513-1304USA008308

PATIENT
  Sex: Male
  Weight: 115.19 kg

DRUGS (2)
  1. PROPECIA [Suspect]
     Active Substance: FINASTERIDE
     Indication: ANDROGENETIC ALOPECIA
     Dosage: 1 MG, QD
     Route: 048
     Dates: start: 20100125, end: 201107
  2. PROPECIA [Suspect]
     Active Substance: FINASTERIDE
     Dosage: UNK
     Route: 048
     Dates: end: 201201

REACTIONS (11)
  - Haematospermia [Unknown]
  - Hypotrichosis [Unknown]
  - Cognitive disorder [Not Recovered/Not Resolved]
  - Erectile dysfunction [Not Recovered/Not Resolved]
  - Infertility [Unknown]
  - Gynaecomastia [Not Recovered/Not Resolved]
  - Premature ejaculation [Unknown]
  - Ejaculation disorder [Unknown]
  - Sexual dysfunction [Not Recovered/Not Resolved]
  - Depression [Not Recovered/Not Resolved]
  - Drug ineffective [Unknown]

NARRATIVE: CASE EVENT DATE: 201003
